FAERS Safety Report 5509936-1 (Version None)
Quarter: 2007Q4

REPORT INFORMATION
  Report Type: 
  Country: None (occurrence: None)
  Receive Date: 20071108
  Receipt Date: 20071029
  Transmission Date: 20080405
  Serious: Yes (Other)
  Sender: FDA-Public Use
  Company Number: US-JNJFOC-20071007708

PATIENT
  Sex: Male
  Weight: 4.65 kg

DRUGS (2)
  1. INFANTS MYLICON NON-STAINING FORMULA [Suspect]
     Indication: FLATULENCE
     Dosage: ^LESS THEN 0.3 ML (20 MG)^ TWICE, TOTAL
  2. FLUCONAZOLE [Concomitant]
     Indication: CANDIDIASIS

REACTIONS (3)
  - CONVULSION [None]
  - CYANOSIS [None]
  - VOMITING PROJECTILE [None]
